FAERS Safety Report 4371506-9 (Version None)
Quarter: 2004Q2

REPORT INFORMATION
  Report Type: 
  Country: None (occurrence: None)
  Receive Date: 20040607
  Receipt Date: 20040526
  Transmission Date: 20050107
  Serious: Yes (Hospitalization, Other)
  Sender: FDA-Public Use
  Company Number: US-BRISTOL-MYERS SQUIBB COMPANY-12596888

PATIENT
  Age: 56 Year
  Sex: Female

DRUGS (19)
  1. CARBOPLATIN [Suspect]
     Indication: OVARIAN CANCER
     Dosage: CYCLE 1: 31-MAR-2003
     Route: 042
     Dates: start: 20030425, end: 20030425
  2. PACLITAXEL [Suspect]
     Indication: OVARIAN CANCER
     Dosage: CYCLE 1: 31-MAR-2003
     Route: 042
     Dates: start: 20030425, end: 20030425
  3. NEXIUM [Concomitant]
     Dates: start: 20010101
  4. PAVABID [Concomitant]
     Dates: start: 19970101
  5. COUMADIN [Concomitant]
     Dates: start: 20030324
  6. POTASSIUM [Concomitant]
     Dates: start: 20030324
  7. PERI-COLACE [Concomitant]
     Dates: start: 20030310
  8. PAXIL [Concomitant]
     Dates: start: 20030310
  9. ADVIL [Concomitant]
     Dates: start: 20030310
  10. AMBIEN [Concomitant]
     Dates: end: 20030101
  11. REGLAN [Concomitant]
     Dates: start: 20030321
  12. DURAGESIC [Concomitant]
     Dates: start: 20030328
  13. PERCOCET [Concomitant]
     Dates: start: 20030328
  14. DECADRON [Concomitant]
     Dates: start: 20030330
  15. ZOFRAN [Concomitant]
     Dates: start: 20030331
  16. ATIVAN [Concomitant]
     Dates: start: 20030331
  17. DECADRON [Concomitant]
     Dates: start: 20030331
  18. BENADRYL [Concomitant]
     Dates: start: 20030331
  19. PROCRIT [Concomitant]
     Dates: start: 20030508

REACTIONS (3)
  - INFECTION [None]
  - NEUTROPENIA [None]
  - PNEUMONIA [None]
